FAERS Safety Report 18529512 (Version 1)
Quarter: 2020Q4

REPORT INFORMATION
  Report Type: Spontaneous
  Country: IN (occurrence: IN)
  Receive Date: 20201120
  Receipt Date: 20201120
  Transmission Date: 20210114
  Serious: Yes (Other)
  Sender: FDA-Public Use
  Company Number: IN-ALLERGAN-2045408US

PATIENT
  Sex: Female

DRUGS (5)
  1. SALBUTAMOL [Suspect]
     Active Substance: ALBUTEROL
     Indication: EXPOSURE DURING PREGNANCY
     Route: 064
  2. BUPIVACAINE. [Suspect]
     Active Substance: BUPIVACAINE
     Indication: EXPOSURE DURING PREGNANCY
     Dosage: 9 MG
     Route: 064
  3. URSODEOXYCHOLIC ACID UNK [Suspect]
     Active Substance: URSODIOL
     Indication: EXPOSURE DURING PREGNANCY
     Dosage: 300 MG, BID
     Route: 064
  4. FUROSEMID [Suspect]
     Active Substance: FUROSEMIDE
     Indication: EXPOSURE DURING PREGNANCY
     Dosage: 20 MG
     Route: 064
  5. FENTANYL. [Suspect]
     Active Substance: FENTANYL
     Indication: EXPOSURE DURING PREGNANCY
     Dosage: 20 ?G
     Route: 064

REACTIONS (2)
  - Foetal distress syndrome [Recovered/Resolved]
  - Premature baby [Unknown]
